FAERS Safety Report 4393592-2 (Version None)
Quarter: 2004Q3

REPORT INFORMATION
  Report Type: 
  Country: None (occurrence: None)
  Receive Date: 20040707
  Receipt Date: 20040707
  Transmission Date: 20050211
  Serious: Yes (Death)
  Sender: FDA-Public Use
  Company Number: None

PATIENT
  Age: 61 Year
  Sex: Male
  Weight: 93 kg

DRUGS (7)
  1. BLEOMYCIN [Suspect]
     Indication: GLIOBLASTOMA
     Dosage: 15 UNITS Q WEEK FOR 2 YEARS
  2. DECADRON [Concomitant]
  3. ZOCOR [Concomitant]
  4. ZOLOFT [Concomitant]
  5. PEPCID [Concomitant]
  6. COLASE/DOSS [Concomitant]
  7. TEMOZOLOMIDE [Concomitant]

REACTIONS (4)
  - DEHYDRATION [None]
  - PNEUMONIA [None]
  - RESPIRATORY FAILURE [None]
  - SUPRAVENTRICULAR TACHYCARDIA [None]
